FAERS Safety Report 13056729 (Version 1)
Quarter: 2016Q4

REPORT INFORMATION
  Report Type: Spontaneous
  Country: FR (occurrence: FR)
  Receive Date: 20161222
  Receipt Date: 20161222
  Transmission Date: 20170207
  Serious: Yes (Death, Hospitalization, Other)
  Sender: FDA-Public Use
  Company Number: FR-GILEAD-2015-0184730

PATIENT
  Age: 50 Year
  Sex: Male

DRUGS (17)
  1. EXACYL [Concomitant]
     Active Substance: TRANEXAMIC ACID
  2. FLUOROURACILE [Concomitant]
     Active Substance: FLUOROURACIL
     Indication: PRODUCT USED FOR UNKNOWN INDICATION
     Route: 065
  3. INEXIUM                            /01479302/ [Concomitant]
     Active Substance: ESOMEPRAZOLE MAGNESIUM
     Indication: PRODUCT USED FOR UNKNOWN INDICATION
     Route: 065
  4. CIPROFLOXACINE                     /00697201/ [Concomitant]
     Active Substance: CIPROFLOXACIN
  5. KARDEGIC [Concomitant]
     Active Substance: ASPIRIN LYSINE
  6. CALCIPARINE [Concomitant]
     Active Substance: HEPARIN CALCIUM
  7. FUMAFER [Concomitant]
     Active Substance: FERROUS FUMARATE
  8. PHOSPHONEUROS [Concomitant]
     Active Substance: CALCIUM PHOSPHATE, DIBASIC, ANHYDROUS\MAGNESIUM GLYCEROPHOSPHATE\PHOSPHORIC ACID\SODIUM PHOSPHATE, DIBASIC
  9. DEPAKINE CHRONO [Concomitant]
     Active Substance: VALPROATE SODIUM
  10. EFFEXOR [Concomitant]
     Active Substance: VENLAFAXINE HYDROCHLORIDE
  11. IMOVANE [Concomitant]
     Active Substance: ZOPICLONE
  12. METOPROLOL. [Concomitant]
     Active Substance: METOPROLOL
  13. ATRIPLA [Suspect]
     Active Substance: EFAVIRENZ\EMTRICITABINE\TENOFOVIR DISOPROXIL FUMARATE
     Indication: HIV INFECTION
     Dosage: 1 DF, QD
     Route: 048
     Dates: end: 20151106
  14. XANAX [Concomitant]
     Active Substance: ALPRAZOLAM
  15. TAHOR [Concomitant]
     Active Substance: ATORVASTATIN CALCIUM
  16. APIDRA [Concomitant]
     Active Substance: INSULIN GLULISINE
  17. SILVER NITRATE. [Concomitant]
     Active Substance: SILVER NITRATE

REACTIONS (3)
  - Proteinuria [Not Recovered/Not Resolved]
  - Acute kidney injury [Recovering/Resolving]
  - Neoplasm malignant [Fatal]

NARRATIVE: CASE EVENT DATE: 20151030
